FAERS Safety Report 4639525-2 (Version None)
Quarter: 2005Q2

REPORT INFORMATION
  Report Type: 
  Country: None (occurrence: None)
  Receive Date: 20050419
  Receipt Date: 20050414
  Transmission Date: 20051028
  Serious: Yes (Life-Threatening)
  Sender: FDA-Public Use
  Company Number: DE-MERCK-0504DEU00116

PATIENT
  Sex: Female

DRUGS (1)
  1. CANCIDAS [Suspect]
     Route: 051

REACTIONS (1)
  - SKIN EXFOLIATION [None]
